FAERS Safety Report 8476886-0 (Version None)
Quarter: 2012Q2

REPORT INFORMATION
  Report Type: 
  Country: None (occurrence: None)
  Receive Date: 20120629
  Receipt Date: 20120619
  Transmission Date: 20120825
  Serious: No
  Sender: FDA-Public Use
  Company Number: US-BIOGENIDEC-2012BI006788

PATIENT
  Sex: Female

DRUGS (3)
  1. SALINE [Concomitant]
  2. TYSABRI [Suspect]
     Indication: MULTIPLE SCLEROSIS
     Route: 042
     Dates: start: 20120215
  3. BENADRYL [Concomitant]

REACTIONS (16)
  - POOR VENOUS ACCESS [None]
  - ERYTHEMA [None]
  - MUSCLE TIGHTNESS [None]
  - PHOTOSENSITIVITY REACTION [None]
  - HYPERSENSITIVITY [None]
  - MALAISE [None]
  - BURNING SENSATION [None]
  - PAIN IN EXTREMITY [None]
  - GAIT DISTURBANCE [None]
  - URTICARIA [None]
  - VISUAL IMPAIRMENT [None]
  - PYREXIA [None]
  - DRUG HYPERSENSITIVITY [None]
  - LOSS OF CONTROL OF LEGS [None]
  - FATIGUE [None]
  - TEMPERATURE INTOLERANCE [None]
